FAERS Safety Report 6654986-5 (Version None)
Quarter: 2010Q1

REPORT INFORMATION
  Report Type: 
  Country: None (occurrence: None)
  Receive Date: 20100329
  Receipt Date: 20100319
  Transmission Date: 20100710
  Serious: Yes (Hospitalization, Other)
  Sender: FDA-Public Use
  Company Number: US-TEVA-226713USA

PATIENT
  Sex: Female

DRUGS (1)
  1. THEOPHYLLINE EXTENDED RELEASE TABLET 300MG [Suspect]
     Indication: ASTHMA
     Route: 048

REACTIONS (3)
  - CARDIAC DISORDER [None]
  - CARDIAC FAILURE CONGESTIVE [None]
  - DRUG INEFFECTIVE [None]
